FAERS Safety Report 12090181 (Version 2)
Quarter: 2016Q1

REPORT INFORMATION
  Report Type: Spontaneous
  Country: GB (occurrence: GB)
  Receive Date: 20160218
  Receipt Date: 20160224
  Transmission Date: 20160526
  Serious: Yes (Hospitalization)
  Sender: FDA-Public Use
  Company Number: GB-TEVA-635208ISR

PATIENT
  Sex: Female

DRUGS (3)
  1. PREDNISOLONE. [Suspect]
     Active Substance: PREDNISOLONE
     Route: 065
  2. CICLOSPORIN [Suspect]
     Active Substance: CYCLOSPORINE
     Route: 065
  3. PREDNISOLONE. [Suspect]
     Active Substance: PREDNISOLONE
     Indication: VIRAL RASH
     Route: 065

REACTIONS (5)
  - HIV infection [Recovered/Resolved]
  - Rash [Recovered/Resolved]
  - Toxicity to various agents [Unknown]
  - AIDS dementia complex [Recovered/Resolved]
  - Candida infection [Recovered/Resolved]
